FAERS Safety Report 9611462 (Version 2)
Quarter: 2013Q4

REPORT INFORMATION
  Report Type: Report from Study
  Country: US (occurrence: US)
  Receive Date: 20131010
  Receipt Date: 20131029
  Transmission Date: 20140711
  Serious: Yes (Other)
  Sender: FDA-Public Use
  Company Number: US-AMGEN-USANI2013070135

PATIENT
  Age: 63 Year
  Sex: Male

DRUGS (11)
  1. XGEVA [Suspect]
     Indication: PROSTATE CANCER METASTATIC
     Dosage: 120 MG, Q28DAYS
     Route: 058
     Dates: start: 20130614
  2. DENOSUMAB [Suspect]
     Indication: PRODUCT USED FOR UNKNOWN INDICATION
     Route: 065
  3. LUPRON [Concomitant]
     Dosage: 30 MG, Q4MO, AS NECESSARY
     Route: 030
  4. CALCIUM MAGNESIUM +VITAMIN D3 [Concomitant]
  5. DEPAKOTE [Concomitant]
     Dosage: 500 MG, 1500 MG, QD
  6. GLUCOSAMINE CHONDROITIN + MSM [Concomitant]
  7. MULTIVITAMINS, PLAIN [Concomitant]
     Dosage: UNK, QD
  8. TRAMADOL HCL [Concomitant]
     Dosage: 50 MG, UNK
  9. OMEGA-3                            /01866101/ [Concomitant]
     Dosage: 2100
  10. SAW PALMETTO                       /00833501/ [Concomitant]
  11. VITAMIN E                          /00110501/ [Concomitant]
     Dosage: 600 UNIT, UNK

REACTIONS (1)
  - Osteonecrosis of jaw [Not Recovered/Not Resolved]
